FAERS Safety Report 8901431 (Version 3)
Quarter: 2013Q1

REPORT INFORMATION
  Report Type: Report from Study
  Country: CA (occurrence: CA)
  Receive Date: 20121109
  Receipt Date: 20130217
  Transmission Date: 20140127
  Serious: Yes (Hospitalization)
  Sender: FDA-Public Use
  Company Number: CA-JNJFOC-20121017352

PATIENT
  Sex: Female
  Weight: 53.3 kg

DRUGS (8)
  1. REMICADE [Suspect]
     Indication: CROHN^S DISEASE
     Dosage: 26TH INFUSION
     Route: 042
     Dates: start: 20120830
  2. REMICADE [Suspect]
     Indication: CROHN^S DISEASE
     Route: 042
     Dates: start: 2009
  3. CLONAZEPAM [Concomitant]
     Route: 065
  4. DEMEROL [Concomitant]
     Route: 065
  5. HYDROCHLOROTHIAZIDE [Concomitant]
     Route: 065
  6. RAMIPRIL [Concomitant]
     Route: 065
  7. PREDNISONE [Concomitant]
     Route: 065
  8. CODEINE [Concomitant]
     Route: 065

REACTIONS (3)
  - Femur fracture [Unknown]
  - Fall [Recovered/Resolved]
  - Inflammation [Unknown]
